FAERS Safety Report 10035222 (Version 2)
Quarter: 2014Q2

REPORT INFORMATION
  Report Type: Spontaneous
  Country: US (occurrence: US)
  Receive Date: 20140325
  Receipt Date: 20140509
  Transmission Date: 20141212
  Serious: Yes (Hospitalization, Other)
  Sender: FDA-Public Use
  Company Number: US-ASTRAZENECA-2014SE18640

PATIENT
  Age: 75 Year
  Sex: Female
  Weight: 61.2 kg

DRUGS (5)
  1. PULMICORT FLEXHALER [Suspect]
     Indication: COUGH
     Dosage: 180MCG 1 PUFF, TWO TIMES A DAY
     Route: 055
     Dates: start: 20140213, end: 20140313
  2. MORPHINE [Suspect]
     Route: 065
  3. ANTIBIOTICS [Suspect]
     Indication: PNEUMONIA
     Route: 065
  4. STEROIDS [Suspect]
     Indication: PNEUMONIA
     Route: 065
  5. PEPCID [Concomitant]
     Indication: GASTROOESOPHAGEAL REFLUX DISEASE
     Dosage: 10MG ONE HALF
     Route: 048

REACTIONS (18)
  - Pneumonia [Unknown]
  - Asthenia [Unknown]
  - Dysstasia [Unknown]
  - Decreased activity [Not Recovered/Not Resolved]
  - Asthma [Unknown]
  - Condition aggravated [Not Recovered/Not Resolved]
  - Dyspnoea [Not Recovered/Not Resolved]
  - Headache [Not Recovered/Not Resolved]
  - Weight decreased [Not Recovered/Not Resolved]
  - Fatigue [Not Recovered/Not Resolved]
  - Hypophagia [Unknown]
  - Dysphonia [Not Recovered/Not Resolved]
  - Cough [Not Recovered/Not Resolved]
  - Bronchospasm [Unknown]
  - Lung disorder [Unknown]
  - Malaise [Unknown]
  - Off label use [Unknown]
  - Drug ineffective [Unknown]
